FAERS Safety Report 8615328-9 (Version None)
Quarter: 2012Q3

REPORT INFORMATION
  Report Type: 
  Country: None (occurrence: None)
  Receive Date: 20120823
  Receipt Date: 20120820
  Transmission Date: 20120928
  Serious: Yes (Other)
  Sender: FDA-Public Use
  Company Number: DE-AMGEN-DEUSP2012052723

PATIENT
  Sex: Male

DRUGS (2)
  1. PROLIA [Suspect]
     Indication: PROSTATE CANCER METASTATIC
     Dosage: UNK
  2. PROLIA [Suspect]
     Indication: METASTASES TO BONE

REACTIONS (1)
  - DRUG ADMINISTRATION ERROR [None]
